FAERS Safety Report 21606765 (Version 1)
Quarter: 2022Q4

REPORT INFORMATION
  Report Type: Spontaneous
  Country: US (occurrence: US)
  Receive Date: 20221117
  Receipt Date: 20221117
  Transmission Date: 20230113
  Serious: Yes (Other)
  Sender: FDA-Public Use
  Company Number: US-SA-SAC20221114001504

PATIENT
  Age: 56 Year
  Sex: Male

DRUGS (1)
  1. ZANTAC [Suspect]
     Active Substance: RANITIDINE HYDROCHLORIDE
     Dosage: UNK, FREQUENCY-OTHER
     Route: 065
     Dates: start: 198301, end: 202101

REACTIONS (1)
  - Pancreatic carcinoma stage II [Unknown]

NARRATIVE: CASE EVENT DATE: 20210201
